FAERS Safety Report 13199747 (Version 1)
Quarter: 2017Q1

REPORT INFORMATION
  Report Type: Report from Study
  Country: BR (occurrence: BR)
  Receive Date: 20170208
  Receipt Date: 20170208
  Transmission Date: 20170428
  Serious: Yes (Hospitalization, Other)
  Sender: FDA-Public Use
  Company Number: BR-JNJFOC-20170205011

PATIENT
  Sex: Male
  Weight: 60 kg

DRUGS (1)
  1. SIMPONI [Suspect]
     Active Substance: GOLIMUMAB
     Indication: RHEUMATOID ARTHRITIS
     Route: 058
     Dates: start: 20151014

REACTIONS (5)
  - Renal failure [Unknown]
  - Thrombosis [Unknown]
  - Cholelithiasis [Unknown]
  - Nosocomial infection [Unknown]
  - Weight decreased [Unknown]
